FAERS Safety Report 8571562-8 (Version None)
Quarter: 2012Q3

REPORT INFORMATION
  Report Type: 
  Country: None (occurrence: None)
  Receive Date: 20120806
  Receipt Date: 20120731
  Transmission Date: 20120928
  Serious: Yes (Hospitalization, Other)
  Sender: FDA-Public Use
  Company Number: PHHY2012NZ053146

PATIENT
  Sex: Female

DRUGS (6)
  1. CANDESARTAN CILEXETIL [Concomitant]
     Dosage: 16 MG, QD
  2. CHLORTHALIDONE [Concomitant]
     Dosage: 25 MG, QD
  3. VITAMINE D3 [Concomitant]
     Dosage: 1.25 MG, MONTHLY
  4. ANGIOTENSIN II [Concomitant]
  5. ZOLEDRONOC ACID [Suspect]
     Indication: OSTEOPOROSIS
     Dosage: UNK UKN, UNK
     Route: 042
     Dates: start: 20120307
  6. DIURETICS [Concomitant]

REACTIONS (14)
  - FLANK PAIN [None]
  - GENERAL PHYSICAL HEALTH DETERIORATION [None]
  - URINARY TRACT OBSTRUCTION [None]
  - LETHARGY [None]
  - HEADACHE [None]
  - BACK PAIN [None]
  - NAUSEA [None]
  - ANAEMIA [None]
  - URINE OUTPUT DECREASED [None]
  - FLUID RETENTION [None]
  - CONVULSION [None]
  - MALAISE [None]
  - DYSURIA [None]
  - COSTOVERTEBRAL ANGLE TENDERNESS [None]
